FAERS Safety Report 15235488 (Version 1)
Quarter: 2018Q3

REPORT INFORMATION
  Report Type: Spontaneous
  Country: GB (occurrence: GB)
  Receive Date: 20180803
  Receipt Date: 20180803
  Transmission Date: 20181010
  Serious: Yes (Hospitalization)
  Sender: FDA-Public Use
  Company Number: GB-ACCORD-070405

PATIENT
  Age: 13 Year
  Sex: Male
  Weight: 49.9 kg

DRUGS (1)
  1. ZOLEDRONIC ACID [Suspect]
     Active Substance: ZOLEDRONIC ACID
     Indication: DUCHENNE MUSCULAR DYSTROPHY
     Route: 042
     Dates: start: 20171207, end: 20171207

REACTIONS (2)
  - Off label use [Unknown]
  - C-reactive protein increased [Recovering/Resolving]

NARRATIVE: CASE EVENT DATE: 20171209
